FAERS Safety Report 7217786-3 (Version None)
Quarter: 2011Q1

REPORT INFORMATION
  Report Type: 
  Country: None (occurrence: None)
  Receive Date: 20110110
  Receipt Date: 20110105
  Transmission Date: 20110831
  Serious: Yes (Death)
  Sender: FDA-Public Use
  Company Number: PHHY2010US79029

PATIENT
  Sex: Female

DRUGS (1)
  1. EXJADE [Suspect]
     Indication: NEOPLASM
     Dosage: 1750 MG, QD
     Route: 048
     Dates: start: 20060501

REACTIONS (2)
  - HAEMORRHAGE INTRACRANIAL [None]
  - PLATELET DISORDER [None]
